FAERS Safety Report 4593956-8 (Version None)
Quarter: 2005Q1

REPORT INFORMATION
  Report Type: 
  Country: None (occurrence: None)
  Receive Date: 20050301
  Receipt Date: 20050221
  Transmission Date: 20050727
  Serious: Yes (Disabling)
  Sender: FDA-Public Use
  Company Number: US-MERCK-0502USA02576

PATIENT
  Age: 58 Year
  Sex: Male

DRUGS (6)
  1. ZOCOR [Suspect]
     Indication: HYPERCHOLESTEROLAEMIA
     Route: 048
  2. LOPRESSOR [Concomitant]
     Route: 065
  3. DILTIAZEM HYDROCHLORIDE [Concomitant]
     Route: 065
  4. PROBENECID [Concomitant]
     Route: 065
  5. ASPIRIN [Concomitant]
     Route: 065
  6. ZOCOR [Suspect]
     Route: 048
     Dates: start: 20040301

REACTIONS (2)
  - MUSCULAR WEAKNESS [None]
  - PAIN IN EXTREMITY [None]
